FAERS Safety Report 6973990-0 (Version None)
Quarter: 2010Q3

REPORT INFORMATION
  Report Type: 
  Country: None (occurrence: None)
  Receive Date: 20100907
  Receipt Date: 20100820
  Transmission Date: 20110219
  Serious: Yes (Hospitalization, Disabling)
  Sender: FDA-Public Use
  Company Number: 2010P1000183

PATIENT
  Age: 56 Year
  Sex: Female

DRUGS (10)
  1. FENTANYL [Suspect]
     Indication: PAIN
     Dosage: 2 MCG/ML; 6 MLS/HR;ED
     Route: 008
     Dates: start: 20100622, end: 20100622
  2. LEVOBUPIVACAINE (NO PREF. NAME) [Suspect]
     Indication: PAIN
     Dosage: 1 MG/ML (0.1%); 6 MLS/HR;ED
     Route: 008
     Dates: start: 20100622, end: 20100622
  3. AMITRIPTYLINE HCL [Concomitant]
  4. FUROSEMIDE [Concomitant]
  5. LEVOTHYROXINE SODIUM [Concomitant]
  6. SIMVASTATIN [Concomitant]
  7. ZOPICLONE [Concomitant]
  8. MERCAPTOPURINE [Concomitant]
  9. LISINOPRIL [Concomitant]
  10. ELLESTE-SOLO [Concomitant]

REACTIONS (9)
  - FAECAL INCONTINENCE [None]
  - IMMOBILE [None]
  - MYELITIS TRANSVERSE [None]
  - PARAESTHESIA [None]
  - PARALYSIS [None]
  - PYREXIA [None]
  - SENSORY DISTURBANCE [None]
  - SPINAL CORD INFARCTION [None]
  - SPINAL CORD ISCHAEMIA [None]
